FAERS Safety Report 7044647-5 (Version None)
Quarter: 2010Q4

REPORT INFORMATION
  Report Type: 
  Country: None (occurrence: None)
  Receive Date: 20101013
  Receipt Date: 20101013
  Transmission Date: 20110411
  Serious: Yes (Other)
  Sender: FDA-Public Use
  Company Number: None

PATIENT
  Age: 38 Year
  Sex: Female
  Weight: 67.586 kg

DRUGS (1)
  1. WELLBUTRIN XL [Suspect]
     Indication: DEPRESSION
     Dosage: 150MG ONE EACH DAY PO
     Route: 048
     Dates: start: 20100901, end: 20100916

REACTIONS (4)
  - DIZZINESS [None]
  - GAIT DISTURBANCE [None]
  - PRODUCT SUBSTITUTION ISSUE [None]
  - VISION BLURRED [None]
